FAERS Safety Report 8896325 (Version 1)
Quarter: 2012Q4

REPORT INFORMATION
  Report Type: Spontaneous
  Country: US (occurrence: None)
  Receive Date: 20121107
  Receipt Date: 20121107
  Transmission Date: 20130627
  Serious: No
  Sender: FDA-Public Use
  Company Number: None

PATIENT
  Age: 86 Year
  Sex: Female
  Weight: 44.45 kg

DRUGS (1)
  1. NEVANAC [Suspect]
     Indication: CORNEAL TRANSPLANT
     Dosage: 1 drop left eye 3 x day eye
     Dates: start: 20121016

REACTIONS (2)
  - Chest pain [None]
  - Rash [None]
